FAERS Safety Report 23056167 (Version 4)
Quarter: 2024Q2

REPORT INFORMATION
  Report Type: Report from Study
  Country: JP (occurrence: JP)
  Receive Date: 20231011
  Receipt Date: 20240528
  Transmission Date: 20240716
  Serious: Yes (Other)
  Sender: FDA-Public Use
  Company Number: None

PATIENT

DRUGS (7)
  1. BELIMUMAB [Suspect]
     Active Substance: BELIMUMAB
     Indication: Systemic lupus erythematosus
     Dosage: 200 MG, WE
     Route: 058
     Dates: start: 20190621, end: 20230801
  2. ASPIRIN [Concomitant]
     Active Substance: ASPIRIN
     Indication: Antiphospholipid syndrome
     Dosage: 100 MG, QD
     Route: 048
     Dates: start: 20230417
  3. HEPARIN-CALCIUM [Concomitant]
     Active Substance: HEPARIN CALCIUM
     Indication: Antiphospholipid syndrome
     Dosage: 10000 IU, QD
     Route: 058
     Dates: start: 20230417
  4. NIFEDIPINE [Concomitant]
     Active Substance: NIFEDIPINE
     Indication: Gestational hypertension
     Dosage: 80 MG, QD
     Route: 048
     Dates: start: 20230727
  5. PREDNISOLONE [Concomitant]
     Active Substance: PREDNISOLONE
     Indication: Systemic lupus erythematosus
     Dosage: 5 MG, 1D
     Route: 048
     Dates: start: 202205
  6. FAMOTIDINE [Concomitant]
     Active Substance: FAMOTIDINE
     Indication: Gastritis
     Dosage: 40 MG, 1D
     Route: 048
     Dates: start: 202205
  7. WARFARIN [Concomitant]
     Active Substance: WARFARIN
     Indication: Antiphospholipid syndrome
     Dosage: 2 MG, QD
     Route: 048
     Dates: start: 20230729

REACTIONS (4)
  - Hypertensive nephropathy [Recovered/Resolved]
  - Gestational hypertension [Recovered/Resolved]
  - Premature delivery [Unknown]
  - Exposure during pregnancy [Unknown]

NARRATIVE: CASE EVENT DATE: 20230201
